FAERS Safety Report 14807294 (Version 1)
Quarter: 2018Q2

REPORT INFORMATION
  Report Type: Spontaneous
  Country: PE (occurrence: PE)
  Receive Date: 20180425
  Receipt Date: 20180425
  Transmission Date: 20180711
  Serious: Yes (Hospitalization, Other)
  Sender: FDA-Public Use
  Company Number: PE-GLAXOSMITHKLINE-PE2018GSK068869

PATIENT
  Age: 84 Year
  Sex: Female

DRUGS (1)
  1. SERETIDE [Suspect]
     Active Substance: FLUTICASONE PROPIONATE\SALMETEROL XINAFOATE
     Indication: ASTHMA
     Dosage: 2 PUFF(S), BID
     Route: 055
     Dates: start: 201707

REACTIONS (4)
  - Rectal haemorrhage [Unknown]
  - Bronchospasm [Unknown]
  - Cardiac operation [Unknown]
  - Product use issue [Unknown]

NARRATIVE: CASE EVENT DATE: 201710
